FAERS Safety Report 5700055-8 (Version None)
Quarter: 2008Q2

REPORT INFORMATION
  Report Type: 
  Country: None (occurrence: None)
  Receive Date: 20080410
  Receipt Date: 20080401
  Transmission Date: 20081010
  Serious: Yes (Disabling)
  Sender: FDA-Public Use
  Company Number: US-ROCHE-545510

PATIENT
  Sex: Female

DRUGS (2)
  1. PEGASYS [Suspect]
     Route: 058
     Dates: start: 20070814, end: 20080205
  2. RIBAVIRIN [Suspect]
     Route: 048
     Dates: start: 20070814, end: 20080205

REACTIONS (2)
  - RETINAL ISCHAEMIA [None]
  - UVEITIS [None]
